FAERS Safety Report 14343179 (Version 1)
Quarter: 2018Q1

REPORT INFORMATION
  Report Type: Spontaneous
  Country: FR (occurrence: FR)
  Receive Date: 20180102
  Receipt Date: 20180102
  Transmission Date: 20180509
  Serious: Yes (Other)
  Sender: FDA-Public Use
  Company Number: FR-BAYER-2017-248060

PATIENT
  Age: 35 Year
  Sex: Female
  Weight: 50 kg

DRUGS (1)
  1. MIRENA [Suspect]
     Active Substance: LEVONORGESTREL
     Indication: CONTRACEPTION
     Dosage: 20 MCG/24HR, CONT
     Route: 015
     Dates: start: 20120801, end: 20150501

REACTIONS (5)
  - Formication [Unknown]
  - Anxiety [Unknown]
  - Libido decreased [Unknown]
  - Depression [Unknown]
  - Throat tightness [Unknown]

NARRATIVE: CASE EVENT DATE: 20130301
